FAERS Safety Report 12270697 (Version 1)
Quarter: 2016Q2

REPORT INFORMATION
  Report Type: Spontaneous
  Country: US (occurrence: None)
  Receive Date: 20160414
  Receipt Date: 20160414
  Transmission Date: 20160815
  Serious: Yes (Hospitalization)
  Sender: FDA-Public Use
  Company Number: None

PATIENT
  Age: 62 Year
  Sex: Male
  Weight: 116.8 kg

DRUGS (15)
  1. MAGNESIUM OXIDE (MAG-OX) [Concomitant]
  2. FLOMAX [Concomitant]
     Active Substance: TAMSULOSIN HYDROCHLORIDE
  3. SPIRONOLACTONE (ALDACTONE) [Concomitant]
  4. FERROUS SULFATE. [Concomitant]
     Active Substance: FERROUS SULFATE
  5. ASCORBIC ACID (VITAMIN C) [Concomitant]
     Active Substance: ASCORBIC ACID
  6. VITAMIN B-12 (CYANOCOBALAMIN) [Concomitant]
  7. CHOLECALCIFEROL (VITAMIN D3) [Concomitant]
  8. CALCIUM [Concomitant]
     Active Substance: CALCIUM
  9. LACTULOSE (CHRONULAC) [Concomitant]
  10. RIVAROXABAN (XARELTO) [Concomitant]
  11. FOSAMAX [Concomitant]
     Active Substance: ALENDRONATE SODIUM
  12. POTASSIUM CHLORIDE SA (K-DUR;KLOR-CON M) [Concomitant]
  13. XARELTO [Suspect]
     Active Substance: RIVAROXABAN
     Indication: DEEP VEIN THROMBOSIS
     Route: 048
     Dates: start: 20151101
  14. CALCIUM CARBONATE. [Concomitant]
     Active Substance: CALCIUM CARBONATE
  15. LASIX [Concomitant]
     Active Substance: FUROSEMIDE

REACTIONS (7)
  - Blood creatinine increased [None]
  - Leukocytosis [None]
  - Ascites [None]
  - Oedema peripheral [None]
  - Hepatic encephalopathy [None]
  - Anaemia [None]
  - Asterixis [None]

NARRATIVE: CASE EVENT DATE: 20160208
